FAERS Safety Report 7745276-8 (Version None)
Quarter: 2011Q3

REPORT INFORMATION
  Report Type: 
  Country: None (occurrence: None)
  Receive Date: 20110913
  Receipt Date: 20110901
  Transmission Date: 20111222
  Serious: Yes (Death)
  Sender: FDA-Public Use
  Company Number: US-CELGENEUS-163-21880-11070583

PATIENT
  Sex: Male

DRUGS (20)
  1. FUROSEMIDE [Concomitant]
     Route: 065
  2. IMODIUM [Concomitant]
     Route: 065
  3. NYSTATIN [Concomitant]
     Route: 065
  4. ACYCLOVIR [Concomitant]
     Route: 065
  5. ZOFRAN [Concomitant]
     Route: 065
  6. OXYCONTIN [Concomitant]
     Route: 065
  7. LORAZEPAM [Concomitant]
     Route: 065
  8. METOLAZONE [Concomitant]
     Route: 065
  9. M.V.I. [Concomitant]
     Route: 065
  10. DEXAMETHASONE [Concomitant]
     Route: 065
  11. PAXIL [Concomitant]
     Route: 065
  12. CHERATUSSIN [Concomitant]
     Route: 065
  13. SIMVASTATIN [Concomitant]
     Route: 065
  14. METOPROLOL SUCCINATE [Concomitant]
     Route: 065
  15. OXYCODONE HCL [Concomitant]
     Route: 065
  16. POTASSIUM [Concomitant]
     Route: 065
  17. REVLIMID [Suspect]
     Indication: MULTIPLE MYELOMA
     Dosage: 10 MILLIGRAM
     Route: 048
     Dates: start: 20110519, end: 20110101
  18. PRILOSEC [Concomitant]
     Route: 065
  19. TYLENOL-500 [Concomitant]
     Route: 065
  20. VITAMIN D [Concomitant]
     Route: 065

REACTIONS (1)
  - MULTIPLE MYELOMA [None]
